FAERS Safety Report 4676689-9 (Version None)
Quarter: 2005Q2

REPORT INFORMATION
  Report Type: 
  Country: None (occurrence: None)
  Receive Date: 20050527
  Receipt Date: 20050516
  Transmission Date: 20051028
  Serious: Yes (Hospitalization)
  Sender: FDA-Public Use
  Company Number: 2005UW07579

PATIENT
  Age: 57 Year
  Sex: Male

DRUGS (3)
  1. ZOMIG [Suspect]
     Indication: MIGRAINE
     Route: 048
     Dates: start: 20041101, end: 20050501
  2. TYLENOL (CAPLET) [Concomitant]
     Indication: MIGRAINE
     Route: 048
  3. ADVIL [Concomitant]
     Indication: MIGRAINE
     Route: 048

REACTIONS (6)
  - CHEST PAIN [None]
  - DRUG INEFFECTIVE [None]
  - HEADACHE [None]
  - HEART RATE IRREGULAR [None]
  - LABILE BLOOD PRESSURE [None]
  - MYOCARDIAL INFARCTION [None]
